FAERS Safety Report 7962231-3 (Version None)
Quarter: 2011Q4

REPORT INFORMATION
  Report Type: 
  Country: None (occurrence: None)
  Receive Date: 20111207
  Receipt Date: 20111130
  Transmission Date: 20120403
  Serious: Yes (Other)
  Sender: FDA-Public Use
  Company Number: PHHY2011NL099837

PATIENT
  Sex: Male

DRUGS (1)
  1. ZOMETA [Suspect]
     Indication: LUNG CANCER METASTATIC
     Dosage: 4 MG/5ML ONCE EVERY 21 DAYS
     Dates: start: 20111110

REACTIONS (3)
  - TERMINAL STATE [None]
  - ASTHENIA [None]
  - PAIN [None]
